FAERS Safety Report 4637300-6 (Version None)
Quarter: 2005Q2

REPORT INFORMATION
  Report Type: 
  Country: None (occurrence: None)
  Receive Date: 20050328
  Receipt Date: 20041125
  Transmission Date: 20051028
  Serious: No
  Sender: FDA-Public Use
  Company Number: USA041184708

PATIENT
  Age: 21 Year
  Sex: Male

DRUGS (3)
  1. STRATTERA [Suspect]
     Indication: ATTENTION DEFICIT/HYPERACTIVITY DISORDER
     Dosage: 80 MG
     Dates: start: 20030416
  2. ADDERALL 10 [Concomitant]
  3. WELLBUTRIN [Concomitant]

REACTIONS (3)
  - DRUG INEFFECTIVE [None]
  - SCROTAL PAIN [None]
  - TESTICULAR ATROPHY [None]
